FAERS Safety Report 21244018 (Version 1)
Quarter: 2022Q3

REPORT INFORMATION
  Report Type: Spontaneous
  Country: US (occurrence: None)
  Receive Date: 20220822
  Receipt Date: 20220822
  Transmission Date: 20221027
  Serious: Yes (Hospitalization)
  Sender: FDA-Public Use
  Company Number: None

PATIENT
  Sex: Male

DRUGS (1)
  1. HUMIRA [Suspect]
     Active Substance: ADALIMUMAB
     Indication: Rheumatoid arthritis
     Dosage: 40 MG/0.4ML SUBCUTANEOUS??INJECT 40 MG  UNDER THE SKIN (SUBCUTANEOUS INJECTION) EVERY OTHER WEEK?
     Route: 058
     Dates: start: 20190523

REACTIONS (2)
  - Antibiotic therapy [None]
  - Therapy interrupted [None]
